FAERS Safety Report 12840340 (Version 1)
Quarter: 2016Q4

REPORT INFORMATION
  Report Type: Spontaneous
  Country: FR (occurrence: FR)
  Receive Date: 20161012
  Receipt Date: 20161012
  Transmission Date: 20170207
  Serious: Yes (Life-Threatening, Hospitalization)
  Sender: FDA-Public Use
  Company Number: FR-ELI_LILLY_AND_COMPANY-FR201610002234

PATIENT
  Age: 58 Year
  Sex: Female

DRUGS (11)
  1. CARBOPLATINE [Suspect]
     Active Substance: CARBOPLATIN
     Dosage: 350 MG, CYCLICAL
     Route: 065
     Dates: start: 20160713
  2. ALIMTA [Suspect]
     Active Substance: PEMETREXED DISODIUM
     Dosage: 650 MG, CYCLICAL
     Route: 065
     Dates: start: 20160713
  3. CARBOPLATINE [Suspect]
     Active Substance: CARBOPLATIN
     Dosage: 440 MG, CYCLICAL
     Route: 065
     Dates: start: 20160615
  4. LEVOTHYROX [Concomitant]
     Active Substance: LEVOTHYROXINE
  5. LYRICA [Concomitant]
     Active Substance: PREGABALIN
  6. LANSOPRAZOLE. [Concomitant]
     Active Substance: LANSOPRAZOLE
  7. BISOPROLOL [Concomitant]
     Active Substance: BISOPROLOL
  8. ATORVASTATINE                      /01326101/ [Concomitant]
     Active Substance: ATORVASTATIN
  9. ALIMTA [Suspect]
     Active Substance: PEMETREXED DISODIUM
     Indication: CHEMOTHERAPY
     Dosage: UNK, CYCLICAL
     Route: 065
  10. ALIMTA [Suspect]
     Active Substance: PEMETREXED DISODIUM
     Dosage: 850 MG, CYCLICAL
     Route: 065
     Dates: start: 20160615
  11. CARBOPLATINE [Suspect]
     Active Substance: CARBOPLATIN
     Indication: CHEMOTHERAPY
     Dosage: UNK, CYCLICAL
     Route: 065

REACTIONS (5)
  - Hypotension [Recovering/Resolving]
  - Infection [Recovering/Resolving]
  - Pancytopenia [Recovering/Resolving]
  - Heart rate increased [Unknown]
  - Skin discolouration [Recovering/Resolving]

NARRATIVE: CASE EVENT DATE: 20160623
